FAERS Safety Report 15253973 (Version 2)
Quarter: 2018Q3

REPORT INFORMATION
  Report Type: Spontaneous
  Country: CA (occurrence: CA)
  Receive Date: 20180808
  Receipt Date: 20180809
  Transmission Date: 20181010
  Serious: Yes (Other)
  Sender: FDA-Public Use
  Company Number: CA-CELLTRION INC.-2017CA011981

PATIENT

DRUGS (10)
  1. INFLECTRA [Suspect]
     Active Substance: INFLIXIMAB-DYYB
     Indication: CROHN^S DISEASE
     Dosage: 300 MG, CYCLIC(EVERY 0,2,6 WEEKS, THEN EVERY 8WEEKS
     Route: 042
     Dates: start: 20170830, end: 20180201
  2. METHOTREXATE SODIUM. [Suspect]
     Active Substance: METHOTREXATE SODIUM
     Indication: ARTHROPATHY
     Dosage: 25 MG, UNK
     Route: 065
  3. MULTIVITAMIN WITH MINERALS [Concomitant]
     Active Substance: MINERALS\VITAMINS
     Dosage: 3 DF, DAILY
     Route: 048
  4. INFLECTRA [Suspect]
     Active Substance: INFLIXIMAB-DYYB
     Indication: CROHN^S DISEASE
     Dosage: 400 MG, CYCLIC(EVERY 8 WEEKS, THEN EVERY 8WEEKS
     Route: 042
     Dates: start: 20180327
  5. ZOPLICONE [Concomitant]
     Active Substance: ZOPICLONE
     Dosage: 1 DF (TABLET), AT BEDTIME AS NEEDED
     Route: 048
  6. PREDNISONE. [Concomitant]
     Active Substance: PREDNISONE
     Dosage: 10 MG, DAILY
     Route: 048
     Dates: start: 20170602
  7. VITAMIN D3 [Concomitant]
     Active Substance: CHOLECALCIFEROL
     Dosage: 3 DF, DAILY
     Route: 048
  8. INFLECTRA [Suspect]
     Active Substance: INFLIXIMAB-DYYB
     Dosage: 400 MG, CYCLIC(EVERY 8 WEEKS, THEN EVERY 8WEEKS
     Route: 042
  9. CALCIUM [Concomitant]
     Active Substance: CALCIUM
     Dosage: UNK UNK, DAILY
  10. MENAQUINONE [Concomitant]
     Dosage: 60 ?G, DAILY
     Route: 048

REACTIONS (12)
  - Rash [Recovered/Resolved]
  - Proctitis [Unknown]
  - Skin mass [Not Recovered/Not Resolved]
  - Dizziness [Recovering/Resolving]
  - Headache [Recovering/Resolving]
  - Condition aggravated [Recovering/Resolving]
  - Product preparation error [Unknown]
  - Drug ineffective [Not Recovered/Not Resolved]
  - Dyspepsia [Unknown]
  - Faecal calprotectin increased [Unknown]
  - Blood pressure increased [Unknown]
  - Product use issue [Unknown]

NARRATIVE: CASE EVENT DATE: 20170830
